FAERS Safety Report 10864264 (Version 1)
Quarter: 2015Q1

REPORT INFORMATION
  Report Type: Spontaneous
  Country: US (occurrence: US)
  Receive Date: 20150223
  Receipt Date: 20150223
  Transmission Date: 20150721
  Serious: Yes (Hospitalization, Other)
  Sender: FDA-Public Use
  Company Number: US-CELGENEUS-163-21880-14053474

PATIENT
  Age: 78 Year
  Sex: Male

DRUGS (29)
  1. COUMADIN [Concomitant]
     Active Substance: WARFARIN SODIUM
     Indication: DEEP VEIN THROMBOSIS
     Dosage: 100 MILLIGRAM
     Route: 048
  2. SILVADENE [Concomitant]
     Active Substance: SILVER SULFADIAZINE
     Indication: PRODUCT USED FOR UNKNOWN INDICATION
     Dosage: 40 PERCENT
     Route: 065
  3. ACYCLOVIR. [Concomitant]
     Active Substance: ACYCLOVIR
     Indication: INFECTION PROPHYLAXIS
  4. ALPRAZOLAM. [Concomitant]
     Active Substance: ALPRAZOLAM
     Indication: PRODUCT USED FOR UNKNOWN INDICATION
     Dosage: 750 MILLIGRAM
     Route: 048
  5. VITAMIN D [Concomitant]
     Active Substance: CHOLECALCIFEROL
     Indication: PROPHYLAXIS
     Dosage: 20 MILLIGRAM
     Route: 048
  6. OMEPRAZOLE. [Concomitant]
     Active Substance: OMEPRAZOLE
     Indication: GASTROOESOPHAGEAL REFLUX DISEASE
     Route: 048
  7. METHYLPREDNISONE ACETATE [Concomitant]
     Active Substance: METHYLPREDNISOLONE ACETATE
     Indication: PRODUCT USED FOR UNKNOWN INDICATION
     Route: 030
  8. HYDROCODONE BITARTRATE AND ACETAMINOPHEN [Concomitant]
     Active Substance: ACETAMINOPHEN\HYDROCODONE BITARTRATE
     Indication: PRODUCT USED FOR UNKNOWN INDICATION
     Dosage: 5-500 MG
     Route: 048
  9. VELCADE [Concomitant]
     Active Substance: BORTEZOMIB
     Dosage: 137 MICROGRAM
     Route: 058
  10. CALCIUM [Concomitant]
     Active Substance: CALCIUM
     Indication: PROPHYLAXIS
     Route: 048
  11. TYLENOL W/ OXYCODONE [Concomitant]
     Route: 048
  12. LORAZEPAM. [Concomitant]
     Active Substance: LORAZEPAM
     Indication: PRODUCT USED FOR UNKNOWN INDICATION
     Dosage: 1-2 TABS
     Route: 065
  13. OXYCODONE [Concomitant]
     Active Substance: OXYCODONE
     Indication: PAIN
     Dosage: 1-2 TABS
     Route: 048
  14. TEMAZEPAM. [Concomitant]
     Active Substance: TEMAZEPAM
     Indication: SLEEP DISORDER
     Route: 048
  15. ZOLPIDEM [Concomitant]
     Active Substance: ZOLPIDEM\ZOLPIDEM TARTRATE
     Indication: SLEEP DISORDER
     Route: 048
  16. VELCADE [Concomitant]
     Active Substance: BORTEZOMIB
     Indication: PLASMA CELL MYELOMA
     Route: 065
     Dates: start: 201309
  17. DEXAMETHASONE. [Concomitant]
     Active Substance: DEXAMETHASONE
     Indication: PLASMA CELL MYELOMA
     Dosage: 5 MILLIGRAM
     Route: 065
     Dates: start: 201302
  18. ACYCLOVIR. [Concomitant]
     Active Substance: ACYCLOVIR
     Indication: PROPHYLAXIS
     Dosage: 2000 IU (INTERNATIONAL UNIT)
     Route: 048
  19. SULFAMETHAXAZOLE-TRIMETHOPRIM [Concomitant]
     Indication: PRODUCT USED FOR UNKNOWN INDICATION
     Dosage: 800-160 MG
     Route: 048
  20. REVLIMID [Suspect]
     Active Substance: LENALIDOMIDE
     Route: 048
     Dates: start: 201303
  21. REVLIMID [Suspect]
     Active Substance: LENALIDOMIDE
     Dosage: .1333 MILLIGRAM
     Route: 048
     Dates: start: 201304, end: 201404
  22. MULTIVITAMIN [Concomitant]
     Active Substance: VITAMINS
     Indication: PRODUCT USED FOR UNKNOWN INDICATION
     Dosage: 2 PERCENT
     Route: 048
  23. REVLIMID [Suspect]
     Active Substance: LENALIDOMIDE
     Indication: PLASMA CELL MYELOMA
     Route: 048
     Dates: start: 20130212
  24. COUMADIN [Concomitant]
     Active Substance: WARFARIN SODIUM
     Indication: THROMBOSIS PROPHYLAXIS
  25. FUROSEMIDE. [Concomitant]
     Active Substance: FUROSEMIDE
     Indication: PERIPHERAL SWELLING
     Route: 048
  26. SYNTHROID [Concomitant]
     Active Substance: LEVOTHYROXINE SODIUM
     Indication: PRODUCT USED FOR UNKNOWN INDICATION
     Route: 048
  27. ZOMETA [Concomitant]
     Active Substance: ZOLEDRONIC ACID
     Indication: PROPHYLAXIS
     Route: 041
     Dates: start: 201302
  28. TYLENOL W/ OXYCODONE [Concomitant]
     Indication: BACK PAIN
     Dosage: 20 MILLIGRAM
     Route: 065
  29. UREA. [Concomitant]
     Active Substance: UREA
     Indication: PRODUCT USED FOR UNKNOWN INDICATION
     Route: 061

REACTIONS (3)
  - Infection susceptibility increased [Recovered/Resolved]
  - Cellulitis [Recovering/Resolving]
  - Pneumonia [Recovering/Resolving]

NARRATIVE: CASE EVENT DATE: 201310
